FAERS Safety Report 5061312-4 (Version None)
Quarter: 2006Q3

REPORT INFORMATION
  Report Type: 
  Country: None (occurrence: None)
  Receive Date: 20060703
  Receipt Date: 20060324
  Transmission Date: 20061208
  Serious: No
  Sender: FDA-Public Use
  Company Number: 2006PV010876

PATIENT
  Age: 54 Year
  Sex: Female
  Weight: 129.7287 kg

DRUGS (13)
  1. SYMLIN [Suspect]
     Indication: DIABETES MELLITUS INSULIN-DEPENDENT
     Dosage: SEE IMAGE
     Route: 058
  2. SYMLIN [Suspect]
     Indication: DIABETES MELLITUS INSULIN-DEPENDENT
     Dosage: SEE IMAGE
     Route: 058
     Dates: start: 20050801
  3. GLUCOPHAGE [Concomitant]
  4. LANTUS [Concomitant]
  5. HUMULIN N [Concomitant]
  6. ZESTRIL [Concomitant]
  7. NORVASC [Concomitant]
  8. COREG [Concomitant]
  9. PLAVIX [Concomitant]
  10. ASPIRIN [Concomitant]
  11. LASIX [Concomitant]
  12. KLOR-CON [Concomitant]
  13. VYTORIN [Concomitant]

REACTIONS (1)
  - DERMATITIS EXFOLIATIVE [None]
